FAERS Safety Report 9407157 (Version 1)
Quarter: 2013Q3

REPORT INFORMATION
  Report Type: Spontaneous
  Country: GB (occurrence: GB)
  Receive Date: 20130718
  Receipt Date: 20130718
  Transmission Date: 20140515
  Serious: Yes (Other)
  Sender: FDA-Public Use
  Company Number: PHHY2013GB074143

PATIENT
  Sex: Male

DRUGS (1)
  1. ATORVASTATIN [Suspect]

REACTIONS (2)
  - Blood cholesterol increased [Unknown]
  - Neuropathy peripheral [Unknown]
